FAERS Safety Report 15494999 (Version 2)
Quarter: 2018Q4

REPORT INFORMATION
  Report Type: Spontaneous
  Country: SI (occurrence: SI)
  Receive Date: 20181012
  Receipt Date: 20181120
  Transmission Date: 20190205
  Serious: Yes (Other)
  Sender: FDA-Public Use
  Company Number: SI-GLAXOSMITHKLINE-SI2017204113

PATIENT
  Age: 31 Year
  Sex: Female

DRUGS (1)
  1. DICLOFENAC [Suspect]
     Active Substance: DICLOFENAC
     Indication: PRODUCT USED FOR UNKNOWN INDICATION
     Dosage: 100 MG, QD
     Route: 065

REACTIONS (12)
  - Abdominal pain upper [Unknown]
  - Ocular hyperaemia [Unknown]
  - Pallor [Unknown]
  - Joint swelling [Unknown]
  - Condition aggravated [Unknown]
  - Crohn^s disease [Unknown]
  - Mouth ulceration [Unknown]
  - Weight decreased [Recovered/Resolved]
  - Fatigue [Unknown]
  - Diarrhoea [Recovering/Resolving]
  - Pain [Unknown]
  - Musculoskeletal stiffness [Unknown]
